FAERS Safety Report 8953693 (Version 1)
Quarter: 2012Q4

REPORT INFORMATION
  Report Type: 
  Country: FR (occurrence: FR)
  Receive Date: 20121206
  Receipt Date: 20121206
  Transmission Date: 20130627
  Serious: Yes (Other)
  Sender: FDA-Public Use
  Company Number: FR-MYLANLABS-2012S1024718

PATIENT
  Sex: Female

DRUGS (5)
  1. CYCLOPHOSPHAMIDE [Suspect]
     Indication: BURKITT^S LYMPHOMA STAGE IV
     Route: 065
  2. VINCRISTINE [Suspect]
     Indication: BURKITT^S LYMPHOMA STAGE IV
     Route: 065
  3. PREDNISONE [Suspect]
     Indication: BURKITT^S LYMPHOMA STAGE IV
     Route: 065
  4. DOXORUBICIN [Suspect]
     Indication: BURKITT^S LYMPHOMA STAGE IV
     Route: 065
  5. METHOTREXATE [Suspect]
     Indication: BURKITT^S LYMPHOMA STAGE IV
     Route: 065

REACTIONS (6)
  - Neutropenia [Unknown]
  - Acute respiratory distress syndrome [Unknown]
  - Malnutrition [Unknown]
  - Superior mesenteric artery syndrome [Unknown]
  - Mucosal inflammation [Unknown]
  - Ileus paralytic [Unknown]
